FAERS Safety Report 18747562 (Version 1)
Quarter: 2021Q1

REPORT INFORMATION
  Report Type: Spontaneous
  Country: US (occurrence: US)
  Receive Date: 20210115
  Receipt Date: 20210115
  Transmission Date: 20210419
  Serious: No
  Sender: FDA-Public Use
  Company Number: US-BRISTOL-MYERS SQUIBB COMPANY-BMS-2021-001988

PATIENT
  Age: 83 Year
  Sex: Female
  Weight: 43.99 kg

DRUGS (2)
  1. ELIQUIS [Suspect]
     Active Substance: APIXABAN
     Indication: THROMBOSIS PROPHYLAXIS
  2. ELIQUIS [Suspect]
     Active Substance: APIXABAN
     Indication: CEREBROVASCULAR ACCIDENT PROPHYLAXIS
     Dosage: UNK UNK, BID
     Route: 048

REACTIONS (4)
  - Purpura [Unknown]
  - Gait disturbance [Unknown]
  - Epistaxis [Unknown]
  - Rash macular [Unknown]

NARRATIVE: CASE EVENT DATE: 2020
